FAERS Safety Report 8834506 (Version 4)
Quarter: 2016Q2

REPORT INFORMATION
  Report Type: Spontaneous
  Country: US (occurrence: US)
  Receive Date: 20121010
  Receipt Date: 20160608
  Transmission Date: 20160815
  Serious: Yes (Hospitalization, Other)
  Sender: FDA-Public Use
  Company Number: US-ASTRAZENECA-2012SE74299

PATIENT
  Age: 29037 Day
  Sex: Male
  Weight: 68 kg

DRUGS (2)
  1. ANOTHER MEDICATION [Suspect]
     Active Substance: UNSPECIFIED INGREDIENT
     Route: 065
  2. NEXIUM [Suspect]
     Active Substance: ESOMEPRAZOLE MAGNESIUM
     Indication: GASTROOESOPHAGEAL REFLUX DISEASE
     Route: 048

REACTIONS (7)
  - Hypoacusis [Unknown]
  - Abdominal adhesions [Unknown]
  - Blindness [Unknown]
  - Nerve injury [Unknown]
  - Adverse drug reaction [Unknown]
  - Body height decreased [Unknown]
  - Macular degeneration [Unknown]

NARRATIVE: CASE EVENT DATE: 201604
